FAERS Safety Report 5658609-3 (Version None)
Quarter: 2008Q1

REPORT INFORMATION
  Report Type: 
  Country: None (occurrence: None)
  Receive Date: 20080310
  Receipt Date: 20070510
  Transmission Date: 20080703
  Serious: No
  Sender: FDA-Public Use
  Company Number: US-BAYER-200710865BCC

PATIENT
  Age: 88 Year
  Sex: Female
  Weight: 54 kg

DRUGS (5)
  1. ALEVE [Suspect]
     Indication: PAIN IN EXTREMITY
     Dosage: TOTAL DAILY DOSE: 880 MG  UNIT DOSE: 220 MG
     Route: 048
     Dates: start: 20070306, end: 20070320
  2. KAOPECTATE [Suspect]
  3. LEVOTHROID [Concomitant]
  4. UNKNOWN MEDICATION FOR HIGH BLOOD PRESSURE [Concomitant]
  5. UNKNOWN MEDICATION FOR HEART [Concomitant]

REACTIONS (2)
  - FAECES DISCOLOURED [None]
  - NAUSEA [None]
